FAERS Safety Report 22014544 (Version 1)
Quarter: 2023Q1

REPORT INFORMATION
  Report Type: Spontaneous
  Country: US (occurrence: None)
  Receive Date: 20230221
  Receipt Date: 20230221
  Transmission Date: 20230417
  Serious: No
  Sender: FDA-Public Use
  Company Number: 2023A037697

PATIENT

DRUGS (5)
  1. OMEPRAZOLE [Suspect]
     Active Substance: OMEPRAZOLE
     Route: 048
  2. IRBESARTAN [Suspect]
     Active Substance: IRBESARTAN
  3. ALLOPURINOL [Suspect]
     Active Substance: ALLOPURINOL
  4. AMLODIPINE [Suspect]
     Active Substance: AMLODIPINE BESYLATE
  5. NAPROXEN [Suspect]
     Active Substance: NAPROXEN

REACTIONS (2)
  - Bone pain [Unknown]
  - Rash erythematous [Unknown]
